FAERS Safety Report 13136496 (Version 1)
Quarter: 2017Q1

REPORT INFORMATION
  Report Type: Report from Study
  Country: US (occurrence: US)
  Receive Date: 20170122
  Receipt Date: 20170122
  Transmission Date: 20170428
  Serious: Yes (Other)
  Sender: FDA-Public Use
  Company Number: US-BIOGEN-2017BI00344624

PATIENT
  Sex: Male
  Weight: 63.56 kg

DRUGS (1)
  1. TECFIDERA [Suspect]
     Active Substance: DIMETHYL FUMARATE
     Indication: MULTIPLE SCLEROSIS
     Dosage: EXPDATE 31OCT2017
     Route: 048

REACTIONS (2)
  - Seizure [Not Recovered/Not Resolved]
  - Central nervous system lesion [Not Recovered/Not Resolved]
